FAERS Safety Report 9552203 (Version 1)
Quarter: 2013Q3

REPORT INFORMATION
  Report Type: Spontaneous
  Country: ES (occurrence: ES)
  Receive Date: 20130925
  Receipt Date: 20130925
  Transmission Date: 20140515
  Serious: Yes (Hospitalization)
  Sender: FDA-Public Use
  Company Number: PHHY2013ES103646

PATIENT
  Age: 50 Year
  Sex: Female

DRUGS (1)
  1. LAMOTRIGINE [Suspect]
     Dosage: 50 MG EVERY 12 HOURS

REACTIONS (24)
  - Trichiasis [Unknown]
  - Eye ulcer [Unknown]
  - Ocular discomfort [Unknown]
  - Toxic epidermal necrolysis [Recovering/Resolving]
  - Stevens-Johnson syndrome [Recovering/Resolving]
  - Pyrexia [Recovering/Resolving]
  - Malaise [Recovering/Resolving]
  - Stomatitis [Recovering/Resolving]
  - Face oedema [Recovering/Resolving]
  - Conjunctivitis [Recovering/Resolving]
  - Skin lesion [Recovered/Resolved]
  - Macule [Recovering/Resolving]
  - Genital lesion [Recovering/Resolving]
  - Scab [Recovering/Resolving]
  - Blister [Recovering/Resolving]
  - Conjunctival haemorrhage [Recovering/Resolving]
  - Corneal erosion [Recovering/Resolving]
  - Conjunctival hyperaemia [Recovering/Resolving]
  - Oropharyngeal blistering [Not Recovered/Not Resolved]
  - Corneal perforation [Unknown]
  - Eyelid function disorder [Recovering/Resolving]
  - Punctate keratitis [Unknown]
  - Swollen tongue [Unknown]
  - Tongue blistering [Unknown]
